FAERS Safety Report 11849308 (Version 1)
Quarter: 2015Q4

REPORT INFORMATION
  Report Type: Spontaneous
  Country: US (occurrence: US)
  Receive Date: 20151218
  Receipt Date: 20151218
  Transmission Date: 20160305
  Serious: No
  Sender: FDA-Public Use
  Company Number: US-FERRINGPH-2014FE03386

PATIENT

DRUGS (2)
  1. REPRONEX [Suspect]
     Active Substance: FOLLITROPIN\LUTEINIZING HORMONE\MENOTROPINS
     Indication: PRODUCT USED FOR UNKNOWN INDICATION
  2. BRAVELLE [Suspect]
     Active Substance: FOLLITROPIN\UROFOLLITROPIN
     Indication: PRODUCT USED FOR UNKNOWN INDICATION

REACTIONS (1)
  - Drug ineffective [Unknown]
